FAERS Safety Report 7298867-5 (Version None)
Quarter: 2011Q1

REPORT INFORMATION
  Report Type: 
  Country: None (occurrence: None)
  Receive Date: 20110217
  Receipt Date: 20110204
  Transmission Date: 20110831
  Serious: Yes (Other)
  Sender: FDA-Public Use
  Company Number: US-ROCHE-757929

PATIENT
  Sex: Female
  Weight: 61.2 kg

DRUGS (13)
  1. ACTEMRA [Suspect]
     Dosage: FORM: INFUSION
     Route: 042
     Dates: start: 20101221, end: 20101221
  2. FLEXERIL [Concomitant]
  3. METOPROLOL [Concomitant]
  4. NIFEDIPINE [Concomitant]
  5. SIMVASTATIN [Concomitant]
  6. AMBIEN [Concomitant]
     Dosage: TAKEN AT BEDTIME
  7. ALBUTEROL [Concomitant]
     Dosage: ROUTE:PUFFER
     Route: 050
  8. GABAPENTIN [Concomitant]
  9. ACTEMRA [Suspect]
     Route: 042
     Dates: start: 20110127
  10. NITROGLYCERIN [Concomitant]
     Route: 060
  11. SYNTHROID [Concomitant]
  12. NIACIN [Concomitant]
  13. PROTONIX [Concomitant]

REACTIONS (9)
  - DYSKINESIA [None]
  - DYSSTASIA [None]
  - MYOCLONUS [None]
  - ANAEMIA MACROCYTIC [None]
  - PNEUMONIA [None]
  - C-REACTIVE PROTEIN INCREASED [None]
  - DIZZINESS [None]
  - ABDOMINAL PAIN UPPER [None]
  - BRONCHITIS [None]
